FAERS Safety Report 25723526 (Version 1)
Quarter: 2025Q3

REPORT INFORMATION
  Report Type: Spontaneous
  Country: EU (occurrence: EU)
  Receive Date: 20250825
  Receipt Date: 20250825
  Transmission Date: 20251021
  Serious: Yes (Hospitalization)
  Sender: NOVO NORDISK
  Company Number: EU-NOVOPROD-1505040

PATIENT
  Weight: 2.96 kg

DRUGS (4)
  1. INSULIN ASPART [Suspect]
     Active Substance: INSULIN ASPART
     Route: 064
  2. INSULIN ASPART [Suspect]
     Active Substance: INSULIN ASPART
     Indication: Product used for unknown indication
     Route: 064
  3. ALPHA LIPOIC ACID [Concomitant]
     Active Substance: .ALPHA.-LIPOIC ACID
     Indication: Prophylaxis
     Dosage: 600 MG, BID
     Route: 064
  4. PREDNISONE [Concomitant]
     Active Substance: PREDNISONE
     Indication: Product used for unknown indication
     Dosage: 25 MG, QD(FOR 2 WEEKS)
     Route: 064

REACTIONS (2)
  - Hypoglycaemia neonatal [Unknown]
  - Foetal exposure during pregnancy [Unknown]
